FAERS Safety Report 20004746 (Version 2)
Quarter: 2021Q4

REPORT INFORMATION
  Report Type: Spontaneous
  Country: JP (occurrence: JP)
  Receive Date: 20211028
  Receipt Date: 20211108
  Transmission Date: 20220303
  Serious: Yes (Other)
  Sender: FDA-Public Use
  Company Number: JP-SA-2021SA352470

PATIENT
  Age: 66 Year
  Sex: Female

DRUGS (4)
  1. FEXOFENADINE HYDROCHLORIDE [Suspect]
     Active Substance: FEXOFENADINE HYDROCHLORIDE
     Indication: Conjunctivitis allergic
     Dosage: 60 MG, BID
     Route: 048
     Dates: start: 20200302, end: 20200720
  2. FEXOFENADINE HYDROCHLORIDE [Suspect]
     Active Substance: FEXOFENADINE HYDROCHLORIDE
     Dosage: 60 MG, BID
     Route: 048
     Dates: start: 20201218, end: 20210116
  3. MEQUITAZINE [Suspect]
     Active Substance: MEQUITAZINE
     Indication: Conjunctivitis allergic
     Dosage: 3 MG, QD
     Route: 048
     Dates: start: 20200403, end: 20200413
  4. LIVOSTIN [Suspect]
     Active Substance: LEVOCABASTINE HYDROCHLORIDE
     Indication: Conjunctivitis allergic
     Dosage: UNK
     Route: 047
     Dates: start: 202004, end: 202004

REACTIONS (2)
  - Alopecia areata [Not Recovered/Not Resolved]
  - Condition aggravated [Not Recovered/Not Resolved]

NARRATIVE: CASE EVENT DATE: 20200401
